FAERS Safety Report 6150065-4 (Version None)
Quarter: 2009Q2

REPORT INFORMATION
  Report Type: 
  Country: None (occurrence: None)
  Receive Date: 20090407
  Receipt Date: 20090407
  Transmission Date: 20091009
  Serious: Yes (Hospitalization)
  Sender: FDA-Public Use
  Company Number: None

PATIENT
  Sex: Male
  Weight: 66.6788 kg

DRUGS (1)
  1. DILANTIN [Suspect]
     Indication: CONVULSION
     Dosage: 250MG BID PO
     Route: 048
     Dates: start: 20090126, end: 20090218

REACTIONS (2)
  - ANTICONVULSANT DRUG LEVEL ABOVE THERAPEUTIC [None]
  - ATAXIA [None]
